FAERS Safety Report 19769073 (Version 3)
Quarter: 2021Q4

REPORT INFORMATION
  Report Type: Report from Study
  Country: SE (occurrence: SE)
  Receive Date: 20210831
  Receipt Date: 20211014
  Transmission Date: 20220304
  Serious: Yes (Death, Other)
  Sender: FDA-Public Use
  Company Number: NVSC2021SE175806

PATIENT
  Age: 12 Year
  Sex: Male
  Weight: 35 kg

DRUGS (9)
  1. TRAMETINIB [Suspect]
     Active Substance: TRAMETINIB
     Indication: Acute lymphocytic leukaemia
     Dosage: 0.025 MG/KG
     Route: 065
     Dates: start: 20210527
  2. TRAMETINIB [Suspect]
     Active Substance: TRAMETINIB
     Dosage: 0.013 MG/KG
     Route: 065
     Dates: start: 20210624
  3. TRAMETINIB [Suspect]
     Active Substance: TRAMETINIB
     Dosage: 0.032 MG/KG
     Route: 065
  4. TRAMETINIB [Suspect]
     Active Substance: TRAMETINIB
     Dosage: 0.019 MG/G
     Route: 065
  5. TRAMETINIB [Suspect]
     Active Substance: TRAMETINIB
     Dosage: 0.014 MG/KG
     Route: 062
     Dates: start: 20210625, end: 20210730
  6. POSACONAZOLE [Concomitant]
     Active Substance: POSACONAZOLE
     Indication: Product used for unknown indication
     Dosage: 120 MG (120 MG X 3)
     Route: 065
     Dates: start: 2019
  7. CLONIDINE [Concomitant]
     Active Substance: CLONIDINE
     Indication: Product used for unknown indication
     Dosage: UNK (DOSE: 3 MCG/KG X 3)
     Route: 065
  8. ACETAMINOPHEN [Concomitant]
     Active Substance: ACETAMINOPHEN
     Indication: Product used for unknown indication
     Dosage: 15 MG/KG (15 MG/KG X4)
     Route: 065
  9. RISPERIDONE [Concomitant]
     Active Substance: RISPERIDONE
     Indication: Product used for unknown indication
     Dosage: 0.25 MG (0.25 MGX 2)
     Route: 065

REACTIONS (13)
  - Death [Fatal]
  - Conjunctival haemorrhage [Unknown]
  - Leukaemia recurrent [Unknown]
  - Skin reaction [Unknown]
  - Lip dry [Unknown]
  - Eye infection [Unknown]
  - Diarrhoea [Recovered/Resolved]
  - Dry skin [Unknown]
  - Skin ulcer [Unknown]
  - Platelet count increased [Unknown]
  - Oral mucosal blistering [Unknown]
  - Platelet count decreased [Unknown]
  - Decreased appetite [Unknown]

NARRATIVE: CASE EVENT DATE: 20210825
